FAERS Safety Report 25955244 (Version 1)
Quarter: 2025Q4

REPORT INFORMATION
  Report Type: Report from Study
  Country: KR (occurrence: KR)
  Receive Date: 20251024
  Receipt Date: 20251024
  Transmission Date: 20260118
  Serious: Yes (Hospitalization)
  Sender: IPSEN BIOPHARMACEUTICALS, INC.
  Company Number: KR-SERVIER-S22009245

PATIENT
  Age: 41 Year
  Sex: Female
  Weight: 65.5 kg

DRUGS (12)
  1. ONIVYDE [Suspect]
     Active Substance: IRINOTECAN HYDROCHLORIDE
     Indication: Pancreatic carcinoma
     Dosage: 121 MG
  2. ONIVYDE [Suspect]
     Active Substance: IRINOTECAN HYDROCHLORIDE
     Dosage: 97 MG
     Dates: start: 20220901, end: 20220901
  3. LEUCOVORIN [Suspect]
     Active Substance: LEUCOVORIN\LEUCOVORIN CALCIUM
     Indication: Pancreatic carcinoma
     Dosage: 690 MG, ONE DOSE
     Dates: start: 20220228, end: 20220901
  4. FLUOROURACIL [Suspect]
     Active Substance: FLUOROURACIL
     Indication: Pancreatic carcinoma
     Dosage: 4150 MG
  5. FLUOROURACIL [Suspect]
     Active Substance: FLUOROURACIL
     Dosage: 3320 MG, ONE DOSE
     Dates: start: 20220901, end: 20220903
  6. ALMAGEL [Concomitant]
     Indication: Gastrointestinal disorder prophylaxis
     Dosage: 3 DF, TID
     Route: 048
     Dates: start: 2022
  7. NORZYME [Concomitant]
     Indication: Dyspepsia
     Dosage: 3 DF, TID
     Route: 048
     Dates: start: 2022
  8. MAGNESIUM OXIDE [Concomitant]
     Active Substance: MAGNESIUM OXIDE
     Indication: Constipation
     Dosage: 3 DF, TID
     Dates: start: 2022
  9. ZOPID [Concomitant]
     Indication: Antidepressant therapy
     Dosage: 5 MG, PRN
     Route: 048
     Dates: start: 2022
  10. ZYPREXA ZYDIS [Concomitant]
     Active Substance: OLANZAPINE
     Indication: Antidepressant therapy
     Dosage: 5 MG, PRN
     Route: 048
     Dates: start: 2022
  11. TRESIBA [Concomitant]
     Active Substance: INSULIN DEGLUDEC
     Indication: Diabetes mellitus
     Dosage: 14 [IU], QD
     Route: 058
     Dates: start: 2022
  12. APIDRA SOLOSTAR [Concomitant]
     Active Substance: INSULIN GLULISINE
     Dosage: 7 [IU], QD
     Route: 058
     Dates: start: 2022

REACTIONS (1)
  - Hypophagia [Recovered/Resolved]

NARRATIVE: CASE EVENT DATE: 20220904
